FAERS Safety Report 4540059-4 (Version None)
Quarter: 2004Q4

REPORT INFORMATION
  Report Type: 
  Country: None (occurrence: None)
  Receive Date: 20041223
  Receipt Date: 20041210
  Transmission Date: 20050328
  Serious: Yes (Hospitalization)
  Sender: FDA-Public Use
  Company Number: 2004110166

PATIENT
  Age: 44 Year
  Sex: Male
  Weight: 88.905 kg

DRUGS (6)
  1. ALPRAZOLAM [Suspect]
     Indication: DEPRESSION
     Dosage: 6 MG (UNKNOWN)
     Route: 065
     Dates: start: 19840101
  2. FLECAINIDE ACETATE [Concomitant]
  3. ATENOLOL [Concomitant]
  4. QUETIAPINE FUMARATE (QUETIAPINE FUMARATE) [Concomitant]
  5. ATORVASTATIN (ATORVASTATIN) [Concomitant]
  6. RANITIDINE [Concomitant]

REACTIONS (7)
  - DRUG ABUSER [None]
  - DRUG INEFFECTIVE [None]
  - FEELING ABNORMAL [None]
  - IMPAIRED DRIVING ABILITY [None]
  - MEDICATION ERROR [None]
  - PANIC DISORDER [None]
  - WEIGHT DECREASED [None]
